FAERS Safety Report 20041402 (Version 1)
Quarter: 2021Q4

REPORT INFORMATION
  Report Type: Spontaneous
  Country: US (occurrence: US)
  Receive Date: 20211108
  Receipt Date: 20211108
  Transmission Date: 20220303
  Serious: No
  Sender: FDA-Public Use
  Company Number: US-ELI_LILLY_AND_COMPANY-US202111001494

PATIENT
  Sex: Male

DRUGS (4)
  1. TALTZ [Suspect]
     Active Substance: IXEKIZUMAB
     Indication: Product used for unknown indication
     Dosage: UNK UNK, UNKNOWN
     Route: 065
  2. NEOTREXATE [Concomitant]
     Indication: Psoriasis
     Dosage: 40 MG, UNKNOWN
  3. NEOTREXATE [Concomitant]
     Indication: Psoriatic arthropathy
  4. FOLIC ACID [Concomitant]
     Active Substance: FOLIC ACID
     Indication: Product used for unknown indication
     Dosage: 2 DOSAGE FORM, UNKNOWN

REACTIONS (3)
  - Weight increased [Unknown]
  - Arthralgia [Unknown]
  - Product dose omission issue [Unknown]
